FAERS Safety Report 5596043-5 (Version None)
Quarter: 2008Q1

REPORT INFORMATION
  Report Type: 
  Country: None (occurrence: None)
  Receive Date: 20080118
  Receipt Date: 20080110
  Transmission Date: 20080703
  Serious: Yes (Other)
  Sender: FDA-Public Use
  Company Number: JP-WYE-H02097408

PATIENT
  Sex: Female

DRUGS (1)
  1. TRIQUILAR-21 [Suspect]
     Route: 048

REACTIONS (1)
  - UTERINE CANCER [None]
